FAERS Safety Report 13692672 (Version 3)
Quarter: 2017Q3

REPORT INFORMATION
  Report Type: Spontaneous
  Country: US (occurrence: US)
  Receive Date: 20170627
  Receipt Date: 20170828
  Transmission Date: 20171127
  Serious: No
  Sender: FDA-Public Use
  Company Number: US-PFIZER INC-2017278824

PATIENT
  Age: 69 Year
  Sex: Female

DRUGS (5)
  1. CELEBREX [Suspect]
     Active Substance: CELECOXIB
     Indication: ARTHRITIS
     Dosage: UNK (AT AROUND 11AM TO 12PM)
  2. XELJANZ [Suspect]
     Active Substance: TOFACITINIB CITRATE
     Dosage: 5 MG, UNK
  3. XELJANZ [Suspect]
     Active Substance: TOFACITINIB CITRATE
     Dosage: UNK (TOOK 5 IN THE MORNING, 5 AT NIGHT, ONE PILL AT 10 AM)
     Dates: start: 20170818
  4. XELJANZ [Suspect]
     Active Substance: TOFACITINIB CITRATE
     Dosage: 5 MG, 2X/DAY
  5. PREDNISONE. [Suspect]
     Active Substance: PREDNISONE
     Dosage: UNK (AT 9AM)

REACTIONS (11)
  - Frequent bowel movements [Unknown]
  - Constipation [Recovered/Resolved]
  - Feeling abnormal [Unknown]
  - Abdominal discomfort [Unknown]
  - Diarrhoea [Unknown]
  - Abdominal pain upper [Unknown]
  - Malaise [Unknown]
  - Discomfort [Unknown]
  - Headache [Unknown]
  - Nausea [Unknown]
  - Eating disorder [Unknown]
